FAERS Safety Report 25438047 (Version 1)
Quarter: 2025Q2

REPORT INFORMATION
  Report Type: Spontaneous
  Country: GB (occurrence: GB)
  Receive Date: 20250616
  Receipt Date: 20250616
  Transmission Date: 20250716
  Serious: Yes (Other)
  Sender: BOEHRINGER INGELHEIM
  Company Number: GB-MHRA-TPP5718158C9634581YC1749485668362

PATIENT
  Age: 86 Year
  Sex: Male
  Weight: 70 kg

DRUGS (10)
  1. LINAGLIPTIN [Suspect]
     Active Substance: LINAGLIPTIN
     Indication: Ill-defined disorder
  2. ASPIRIN [Concomitant]
     Active Substance: ASPIRIN
     Indication: Ill-defined disorder
     Dosage: TAKE ONE DAILY?FORM OF ADMIN:TPP YC - PLEASE RECLASSIFY
     Dates: start: 20250120
  3. ISOSORBIDE MONONITRATE [Concomitant]
     Active Substance: ISOSORBIDE MONONITRATE
     Indication: Ill-defined disorder
     Dosage: TAKE ONE EACH MORNING?FORM OF ADMIN:TPP YC - PLEASE RECLASSIFY
     Dates: start: 20250120
  4. MEMANTINE [Concomitant]
     Active Substance: MEMANTINE
     Indication: Ill-defined disorder
     Dosage: TAKE ONE DAILY?FORM OF ADMIN:TPP YC - PLEASE RECLASSIFY
     Dates: start: 20250120
  5. OMEPRAZOLE [Concomitant]
     Active Substance: OMEPRAZOLE
     Indication: Ill-defined disorder
     Dosage: FORM OF ADMIN:TPP YC - PLEASE RECLASSIFY
     Dates: start: 20250120
  6. ROSUVASTATIN [Concomitant]
     Active Substance: ROSUVASTATIN
     Indication: Ill-defined disorder
     Dosage: PLEASE HAVE A BLOOD TEST IN 3 ...?FORM OF ADMIN:TPP YC - PLEASE RECLASSIFY
     Dates: start: 20250120
  7. DILTIAZEM HYDROCHLORIDE [Concomitant]
     Active Substance: DILTIAZEM HYDROCHLORIDE
     Indication: Ill-defined disorder
     Dosage: TAKE ONE DAILY?FORM OF ADMIN:TPP YC - PLEASE RECLASSIFY
     Dates: start: 20250120
  8. DICLOFENAC DIETHYLAMINE [Concomitant]
     Active Substance: DICLOFENAC DIETHYLAMINE
     Indication: Ill-defined disorder
     Dosage: APPLY TWICE DAILY?FORM OF ADMIN:TPP YC - PLEASE RECLASSIFY
     Dates: start: 20250127
  9. LINAGLIPTIN [Concomitant]
     Active Substance: LINAGLIPTIN
     Indication: Ill-defined disorder
     Dosage: TAKE ONE DAILY?FORM OF ADMIN:TPP YC - PLEASE RECLASSIFY
     Dates: start: 20250224
  10. LATANOPROST [Concomitant]
     Active Substance: LATANOPROST
     Indication: Ill-defined disorder
     Dosage: ONE DROP ONCE DAILY AT NIGHT IN BOTH EYES?FORM OF ADMIN:TPP YC - PLEASE RECLASSIFY
     Dates: start: 20250402

REACTIONS (2)
  - Urinary incontinence [Unknown]
  - Polyuria [Unknown]

NARRATIVE: CASE EVENT DATE: 20250513
